FAERS Safety Report 6731902-9 (Version None)
Quarter: 2010Q2

REPORT INFORMATION
  Report Type: 
  Country: None (occurrence: None)
  Receive Date: 20100517
  Receipt Date: 20100505
  Transmission Date: 20101027
  Serious: Yes (Hospitalization)
  Sender: FDA-Public Use
  Company Number: LEO-2010-00406

PATIENT
  Age: 29 Year
  Sex: Female
  Weight: 77 kg

DRUGS (5)
  1. INNOHEP [Suspect]
     Indication: THROMBOSIS PROPHYLAXIS
     Dosage: 4500 IU (4500 IU,1 IN 1 D)
     Dates: start: 20041220, end: 20050918
  2. VITAMINS (VITAMINS NOS) [Concomitant]
  3. IRON (IRON) [Concomitant]
  4. MECILLINAM (MECILLINAM) [Concomitant]
  5. PIVMECILLINAM (PIVMECILLINAM) [Concomitant]

REACTIONS (4)
  - CAESAREAN SECTION [None]
  - DRUG EXPOSURE DURING PREGNANCY [None]
  - PLACENTA PRAEVIA [None]
  - VAGINAL HAEMORRHAGE [None]
